FAERS Safety Report 13181068 (Version 1)
Quarter: 2017Q1

REPORT INFORMATION
  Report Type: Spontaneous
  Country: US (occurrence: US)
  Receive Date: 20170202
  Receipt Date: 20170202
  Transmission Date: 20170428
  Serious: No
  Sender: FDA-Public Use
  Company Number: US-SMITH AND NEPHEW, INC-2016SMT00586

PATIENT
  Age: 74 Year
  Sex: Male
  Weight: 117.91 kg

DRUGS (30)
  1. DULERA [Concomitant]
     Active Substance: FORMOTEROL FUMARATE DIHYDRATE\MOMETASONE FUROATE
     Dosage: 2 DOSAGE UNITS, 2X/DAY
  2. LEVEMIR [Concomitant]
     Active Substance: INSULIN DETEMIR
     Dosage: 75 U, 2X/DAY
  3. MONTELUKAST [Concomitant]
     Active Substance: MONTELUKAST SODIUM
     Dosage: 10 MG, 1X/DAY
  4. METOLAZONE. [Concomitant]
     Active Substance: METOLAZONE
     Dosage: 2.5 MG, 1X/WEEK
  5. MULTI VITAMIN [Concomitant]
     Active Substance: VITAMINS
     Dosage: UNK, 1X/DAY
  6. REGRANEX [Suspect]
     Active Substance: BECAPLERMIN
     Indication: DIABETIC ULCER
     Dosage: UNK UNK, 1X/DAY
     Route: 061
     Dates: start: 201606, end: 20160629
  7. FENOFIBRATE. [Concomitant]
     Active Substance: FENOFIBRATE
     Dosage: 200 MG, 1X/DAY
  8. ALLOPURINOL. [Concomitant]
     Active Substance: ALLOPURINOL
     Dosage: 500 MG, 1X/DAY
  9. ^ZING^ [Concomitant]
     Dosage: 150 MG, 1X/DAY
  10. PEPCID [Concomitant]
     Active Substance: FAMOTIDINE
     Dosage: 20 MG, 1X/DAY
  11. FUROSEMIDE. [Concomitant]
     Active Substance: FUROSEMIDE
     Dosage: 60 MG, 1X/WEEK
  12. SPIRIVA [Concomitant]
     Active Substance: TIOTROPIUM BROMIDE MONOHYDRATE
     Dosage: 1 DOSAGE UNITS, 1X/DAY
  13. KLOR-CON [Concomitant]
     Active Substance: POTASSIUM CHLORIDE
     Dosage: 40 MEQ, 2X/DAY
  14. KLOR-CON [Concomitant]
     Active Substance: POTASSIUM CHLORIDE
     Dosage: 20 MEQ, 1X/DAY
  15. HUMALOG [Concomitant]
     Active Substance: INSULIN LISPRO
     Dosage: 45 U, 5X/DAY
  16. CAPTOPRIL. [Concomitant]
     Active Substance: CAPTOPRIL
     Dosage: 50 MG, 2X/DAY
  17. VITAMIN C [Concomitant]
     Active Substance: ASCORBIC ACID
     Dosage: UNK, 2X/DAY
  18. VITAMIN B12 [Concomitant]
     Active Substance: CYANOCOBALAMIN
     Dosage: 2500 U, 1X/DAY
  19. CALCIUM [Concomitant]
     Active Substance: CALCIUM
     Dosage: 600 MG, 1X/DAY
  20. CLARITIN [Concomitant]
     Active Substance: LORATADINE
     Dosage: 10 MG, 1X/DAY
  21. METFORMIN [Concomitant]
     Active Substance: METFORMIN HYDROCHLORIDE
     Dosage: 500 MG, 2X/DAY
  22. COLCRYS [Concomitant]
     Active Substance: COLCHICINE
     Dosage: 6 MG, 3X/DAY FOR 1.5 DAYS
  23. B3 [Concomitant]
     Dosage: 2000 U, 1X/DAY
  24. FUROSEMIDE. [Concomitant]
     Active Substance: FUROSEMIDE
     Dosage: 80 MG, 6X/WEEK
  25. CARVEDILOL. [Concomitant]
     Active Substance: CARVEDILOL
     Dosage: 12.5 MG, 2X/DAY
  26. PROAIR INHALER [Concomitant]
     Dosage: UNK, AS NEEDED
  27. FLONASE [Concomitant]
     Active Substance: FLUTICASONE PROPIONATE
     Dosage: 4 DOSAGE UNITS, 2X/DAY
     Route: 045
  28. FUROSEMIDE. [Concomitant]
     Active Substance: FUROSEMIDE
     Dosage: 60 MG, 1X/DAY
  29. ASPIRIN. [Concomitant]
     Active Substance: ASPIRIN
     Dosage: 325 MG, 1X/DAY
  30. ^MAG^ [Concomitant]
     Dosage: 400 MG, 1X/DAY

REACTIONS (4)
  - Wound complication [Recovering/Resolving]
  - Wound drainage [Recovering/Resolving]
  - Drug ineffective [Recovered/Resolved]
  - Incorrect drug administration duration [Recovered/Resolved]

NARRATIVE: CASE EVENT DATE: 201606
